FAERS Safety Report 7068659-0 (Version None)
Quarter: 2010Q4

REPORT INFORMATION
  Report Type: 
  Country: None (occurrence: None)
  Receive Date: 20101027
  Receipt Date: 20101027
  Transmission Date: 20110411
  Serious: Yes (Hospitalization)
  Sender: FDA-Public Use
  Company Number: None

PATIENT
  Age: 23 Year
  Sex: Female

DRUGS (3)
  1. CEPHALEXIN [Suspect]
     Dates: start: 20101011, end: 20101017
  2. CITALOPRAM HYDROBROMIDE [Concomitant]
  3. FOLBEE PLUS [Concomitant]

REACTIONS (7)
  - ERYTHEMA MULTIFORME [None]
  - FATIGUE [None]
  - HYPERHIDROSIS [None]
  - LYMPHADENOPATHY [None]
  - OEDEMA MOUTH [None]
  - PYREXIA [None]
  - SWOLLEN TONGUE [None]
